FAERS Safety Report 9303136 (Version 3)
Quarter: 2014Q3

REPORT INFORMATION
  Report Type: Spontaneous
  Country: US (occurrence: US)
  Receive Date: 20130522
  Receipt Date: 20140710
  Transmission Date: 20150326
  Serious: No
  Sender: FDA-Public Use
  Company Number: US-009507513-1305USA011634

PATIENT
  Sex: Male

DRUGS (1)
  1. PROPECIA [Suspect]
     Active Substance: FINASTERIDE
     Indication: ALOPECIA
     Dosage: 1 MG, UNK
     Route: 048
     Dates: start: 20031110, end: 200604

REACTIONS (11)
  - Sexual dysfunction [Not Recovered/Not Resolved]
  - Gynaecomastia [Recovered/Resolved]
  - Libido decreased [Unknown]
  - Erythema [Unknown]
  - Erectile dysfunction [Not Recovered/Not Resolved]
  - Facial bones fracture [Unknown]
  - Depression [Not Recovered/Not Resolved]
  - Hypogonadism [Unknown]
  - Attention deficit/hyperactivity disorder [Unknown]
  - Anxiety [Not Recovered/Not Resolved]
  - Blood testosterone decreased [Recovered/Resolved]

NARRATIVE: CASE EVENT DATE: 2003
